FAERS Safety Report 8587472-6 (Version None)
Quarter: 2012Q3

REPORT INFORMATION
  Report Type: 
  Country: None (occurrence: None)
  Receive Date: 20120810
  Receipt Date: 20120730
  Transmission Date: 20120928
  Serious: Yes (Hospitalization)
  Sender: FDA-Public Use
  Company Number: US-GILEAD-2012-0058971

PATIENT
  Sex: Male

DRUGS (10)
  1. NIFEDIPINE [Concomitant]
     Indication: HYPERTENSION
     Dosage: UNK
     Dates: start: 20090501
  2. RANOLAZINE [Suspect]
     Dosage: 500 MG, UNK
     Route: 048
     Dates: start: 20120719, end: 20120723
  3. RENAGEL [Concomitant]
     Indication: NEPHROPATHY
     Dosage: UNK
     Dates: start: 20080401
  4. HECTOROL [Concomitant]
     Indication: NEPHROPATHY
     Dosage: UNK
     Dates: start: 20080401
  5. FUROSEMIDE [Concomitant]
     Indication: HYPERTENSION
     Dosage: UNK
     Dates: start: 20090501
  6. METOPROLOL TARTRATE [Concomitant]
     Indication: HYPERTENSION
     Dosage: UNK
     Dates: start: 20100901
  7. ASPIRIN [Concomitant]
     Indication: CARDIAC DISORDER
     Dosage: UNK
     Dates: start: 20100901
  8. RANOLAZINE [Suspect]
     Indication: ANGINA PECTORIS
     Dosage: 1000 MG, UNK
     Route: 048
     Dates: start: 20120724, end: 20120729
  9. LANTUS [Concomitant]
     Indication: DIABETES MELLITUS
  10. HUMALOG [Concomitant]
     Indication: DIABETES MELLITUS
     Dosage: UNK
     Dates: start: 20081201

REACTIONS (2)
  - RENAL FAILURE ACUTE [None]
  - URAEMIC ENCEPHALOPATHY [None]
